FAERS Safety Report 16049695 (Version 1)
Quarter: 2019Q1

REPORT INFORMATION
  Report Type: Spontaneous
  Country: US (occurrence: US)
  Receive Date: 20190307
  Receipt Date: 20190307
  Transmission Date: 20190418
  Serious: Yes (Other)
  Sender: FDA-Public Use
  Company Number: US-009507513-1902USA011467

PATIENT
  Sex: Female
  Weight: 90.25 kg

DRUGS (5)
  1. TEMODAR [Suspect]
     Active Substance: TEMOZOLOMIDE
     Indication: SARCOMA METASTATIC
     Dosage: UNK
     Dates: start: 201804, end: 20180921
  2. HYDROCHLOROTHIAZIDE. [Concomitant]
     Active Substance: HYDROCHLOROTHIAZIDE
     Dosage: UNK
  3. AVASTIN [Concomitant]
     Active Substance: BEVACIZUMAB
     Indication: SARCOMA METASTATIC
     Dosage: UNK
     Dates: start: 2018, end: 20180921
  4. ATENOLOL. [Concomitant]
     Active Substance: ATENOLOL
     Dosage: UNK
  5. ADVIL [Concomitant]
     Active Substance: IBUPROFEN
     Dosage: UNK

REACTIONS (4)
  - Dyspepsia [Unknown]
  - Malignant neoplasm progression [Unknown]
  - Dysgeusia [Unknown]
  - Drug ineffective for unapproved indication [Unknown]

NARRATIVE: CASE EVENT DATE: 2018
